FAERS Safety Report 20841087 (Version 1)
Quarter: 2022Q2

REPORT INFORMATION
  Report Type: Spontaneous
  Country: US (occurrence: US)
  Receive Date: 20220517
  Receipt Date: 20220517
  Transmission Date: 20220721
  Serious: No
  Sender: FDA-Public Use
  Company Number: US-PFIZER INC-202200092369

PATIENT
  Age: 54 Year
  Sex: Female

DRUGS (2)
  1. CYTOMEL [Suspect]
     Active Substance: LIOTHYRONINE SODIUM
     Dosage: 12.5 UG, 1X/DAY
     Route: 048
  2. CYTOMEL [Suspect]
     Active Substance: LIOTHYRONINE SODIUM
     Dosage: 12.5 UG, EVERY OTHER DAY
     Route: 048

REACTIONS (4)
  - Immune system disorder [Unknown]
  - COVID-19 [Unknown]
  - Intentional product misuse [Unknown]
  - Incorrect dose administered [Unknown]
